FAERS Safety Report 8964322 (Version 1)
Quarter: 2012Q4

REPORT INFORMATION
  Report Type: 
  Country: US (occurrence: US)
  Receive Date: 20121214
  Receipt Date: 20121214
  Transmission Date: 20130627
  Serious: Yes (Other)
  Sender: FDA-Public Use
  Company Number: US-GLAXOSMITHKLINE-A0967872A

PATIENT
  Age: 71 Year
  Sex: Male

DRUGS (6)
  1. AVODART [Suspect]
     Indication: BENIGN PROSTATIC HYPERPLASIA
     Dosage: 1CAP Per day
     Route: 048
     Dates: start: 20100325
  2. ZINC [Concomitant]
  3. MULTIVITAMIN [Concomitant]
  4. COUMADIN [Concomitant]
  5. XALATAN [Concomitant]
  6. COMBIGAN [Concomitant]

REACTIONS (1)
  - Breast cancer [Recovering/Resolving]
